FAERS Safety Report 8742947 (Version 3)
Quarter: 2012Q4

REPORT INFORMATION
  Report Type: 
  Country: US (occurrence: US)
  Receive Date: 20120824
  Receipt Date: 20121023
  Transmission Date: 20130627
  Serious: Yes (Disabling, Congenital Anomaly, Other)
  Sender: FDA-Public Use
  Company Number: PHEH2012US016439

PATIENT
  Age: 59 Year
  Sex: Female
  Weight: 155 kg

DRUGS (1)
  1. TOBI [Suspect]
     Indication: CYSTIC FIBROSIS
     Dosage: 5 ml, BID

REACTIONS (4)
  - Pseudomonas infection [Recovered/Resolved with Sequelae]
  - Cystic fibrosis [Not Recovered/Not Resolved]
  - Condition aggravated [Not Recovered/Not Resolved]
  - Malaise [Unknown]
